FAERS Safety Report 18362350 (Version 2)
Quarter: 2020Q4

REPORT INFORMATION
  Report Type: Spontaneous
  Country: US (occurrence: US)
  Receive Date: 20201009
  Receipt Date: 20201102
  Transmission Date: 20210114
  Serious: No
  Sender: FDA-Public Use
  Company Number: US-ASTRAZENECA-2020SF28176

PATIENT
  Sex: Female

DRUGS (1)
  1. SYMBICORT [Suspect]
     Active Substance: BUDESONIDE\FORMOTEROL FUMARATE DIHYDRATE
     Dosage: 160 OF 4.5 MCG TWO PUFFS TWICE A DAY
     Route: 055

REACTIONS (6)
  - Memory impairment [Unknown]
  - Intentional device misuse [Recovered/Resolved]
  - Illness [Unknown]
  - Migraine [Unknown]
  - Product dose omission issue [Unknown]
  - Device malfunction [Unknown]
